FAERS Safety Report 18223979 (Version 1)
Quarter: 2020Q3

REPORT INFORMATION
  Report Type: Spontaneous
  Country: JP (occurrence: JP)
  Receive Date: 20200902
  Receipt Date: 20200902
  Transmission Date: 20201103
  Serious: Yes (Death)
  Sender: FDA-Public Use
  Company Number: JP-ELI_LILLY_AND_COMPANY-JP202008011995

PATIENT
  Age: 65 Year
  Sex: Male
  Weight: 52.4 kg

DRUGS (16)
  1. WARFARIN K [Concomitant]
     Active Substance: WARFARIN POTASSIUM
     Indication: PRODUCT USED FOR UNKNOWN INDICATION
     Dosage: 1 MG
     Dates: end: 20190924
  2. TAKECAB [Concomitant]
     Active Substance: VONOPRAZAN FUMARATE
     Indication: PRODUCT USED FOR UNKNOWN INDICATION
     Dosage: 10 MG
     Dates: start: 20170810, end: 20190924
  3. ADCIRCA [Suspect]
     Active Substance: TADALAFIL
     Indication: PULMONARY ARTERIAL HYPERTENSION
     Dosage: 5 MG, DAILY
     Route: 065
     Dates: start: 20170501, end: 20170504
  4. UPTRAVI [Suspect]
     Active Substance: SELEXIPAG
     Dosage: 0.2 MG, BID
     Route: 048
     Dates: start: 20171130, end: 20190924
  5. SPIRONOLACTONE. [Concomitant]
     Active Substance: SPIRONOLACTONE
     Indication: PRODUCT USED FOR UNKNOWN INDICATION
     Dosage: 25 MG
     Dates: end: 20171213
  6. UPTRAVI [Suspect]
     Active Substance: SELEXIPAG
     Dosage: 0.4 MG, BID
     Route: 048
     Dates: start: 20170810, end: 20171129
  7. PARAMIDIN [Concomitant]
     Active Substance: BUCOLOME
     Indication: PRODUCT USED FOR UNKNOWN INDICATION
     Dosage: 300 MG
     Dates: end: 20190924
  8. SPIRONOLACTONE. [Concomitant]
     Active Substance: SPIRONOLACTONE
     Dosage: 75 MG
     Dates: start: 20171214, end: 20190924
  9. ADCIRCA [Suspect]
     Active Substance: TADALAFIL
     Dosage: 10 MG, DAILY
     Route: 065
     Dates: start: 20170505, end: 20170510
  10. ASPARA POTASSIUM [Concomitant]
     Active Substance: POTASSIUM ASPARTATE
     Indication: PRODUCT USED FOR UNKNOWN INDICATION
     Dosage: 600 MG
     Dates: start: 20171228, end: 20190924
  11. ADCIRCA [Suspect]
     Active Substance: TADALAFIL
     Dosage: 20 MG, DAILY
     Route: 065
     Dates: start: 20170511, end: 20190924
  12. UPTRAVI [Suspect]
     Active Substance: SELEXIPAG
     Indication: PULMONARY ARTERIAL HYPERTENSION
     Dosage: 0.2 MG, BID
     Route: 048
     Dates: start: 20170512, end: 20170809
  13. OPSUMIT [Concomitant]
     Active Substance: MACITENTAN
     Indication: PULMONARY ARTERIAL HYPERTENSION
     Dosage: 10 MG
     Dates: start: 20161013, end: 20190924
  14. FUROSEMIDE. [Concomitant]
     Active Substance: FUROSEMIDE
     Indication: PRODUCT USED FOR UNKNOWN INDICATION
     Dosage: 40 MG
     Dates: end: 20190924
  15. FLUITRAN [Concomitant]
     Active Substance: TRICHLORMETHIAZIDE
     Indication: PRODUCT USED FOR UNKNOWN INDICATION
     Dosage: 0.5 MG
     Dates: start: 20170601, end: 20190924
  16. DIGOSIN [Concomitant]
     Active Substance: DIGOXIN
     Indication: PRODUCT USED FOR UNKNOWN INDICATION
     Dosage: 0.1 MG
     Dates: start: 20171228, end: 20190924

REACTIONS (2)
  - Anaemia [Recovering/Resolving]
  - Pulmonary arterial hypertension [Fatal]

NARRATIVE: CASE EVENT DATE: 20170824
